FAERS Safety Report 19168502 (Version 1)
Quarter: 2021Q2

REPORT INFORMATION
  Report Type: Spontaneous
  Country: IT (occurrence: IT)
  Receive Date: 20210422
  Receipt Date: 20210422
  Transmission Date: 20210717
  Serious: Yes (Death)
  Sender: FDA-Public Use
  Company Number: IT-OXFORD PHARMACEUTICALS, LLC-2109620

PATIENT
  Age: 49 Year
  Sex: Male

DRUGS (14)
  1. CLINDAMYCIN. [Concomitant]
     Active Substance: CLINDAMYCIN
  2. LEVOTHYROXINE. [Concomitant]
     Active Substance: LEVOTHYROXINE
  3. ACETYLCYSTEINE. [Concomitant]
     Active Substance: ACETYLCYSTEINE
  4. PREDNISONE. [Concomitant]
     Active Substance: PREDNISONE
  5. THIAMINE. [Concomitant]
     Active Substance: THIAMINE
  6. ZOLPIDEM [Interacting]
     Active Substance: ZOLPIDEM TARTRATE
  7. CIPROFLOXACIN. [Concomitant]
     Active Substance: CIPROFLOXACIN
  8. GABAPENTIN. [Concomitant]
     Active Substance: GABAPENTIN
  9. ESOMEPRAZOLE. [Concomitant]
     Active Substance: ESOMEPRAZOLE MAGNESIUM
  10. MORPHINE SULFATE. [Interacting]
     Active Substance: MORPHINE SULFATE
  11. SODIUM PICOSULFATE [Concomitant]
     Active Substance: SODIUM PICOSULFATE
  12. VITAMIN B [Concomitant]
     Active Substance: VITAMIN B
  13. TIZANIDINE HYDROCHLORIDE. [Suspect]
     Active Substance: TIZANIDINE HYDROCHLORIDE
     Indication: PRODUCT USED FOR UNKNOWN INDICATION
  14. OXAZEPAM. [Interacting]
     Active Substance: OXAZEPAM

REACTIONS (2)
  - Drug interaction [Unknown]
  - Respiratory distress [Fatal]
